FAERS Safety Report 13976237 (Version 1)
Quarter: 2017Q3

REPORT INFORMATION
  Report Type: Spontaneous
  Country: US (occurrence: US)
  Receive Date: 20170914
  Receipt Date: 20170914
  Transmission Date: 20171128
  Serious: Yes (Death)
  Sender: FDA-Public Use
  Company Number: US-CELGENEUS-USA-20170901678

PATIENT
  Sex: Female

DRUGS (1)
  1. REVLIMID [Suspect]
     Active Substance: LENALIDOMIDE
     Indication: HYPOGAMMAGLOBULINAEMIA
     Dosage: 5 MILLIGRAM
     Route: 048
     Dates: start: 20170727

REACTIONS (1)
  - Death [Fatal]
